FAERS Safety Report 8780124 (Version 1)
Quarter: 2012Q4

REPORT INFORMATION
  Report Type: Spontaneous
  Country: US (occurrence: None)
  Receive Date: 20120831
  Receipt Date: 20120831
  Transmission Date: 20130627
  Serious: Yes (Disabling)
  Sender: FDA-Public Use
  Company Number: None

PATIENT
  Age: 44 Year
  Sex: Female
  Weight: 45.5 kg

DRUGS (3)
  1. KENALOG [Suspect]
     Dosage: 200 mg. Kenalog 40 total 4 injections 2 facet injections;2 epidural injection
     Dates: start: 20120712
  2. KENALOG [Suspect]
     Dates: start: 20120112
  3. KENALOG [Suspect]
     Dates: start: 20120120

REACTIONS (2)
  - Pruritus generalised [None]
  - Burning sensation [None]
